FAERS Safety Report 13374193 (Version 1)
Quarter: 2017Q1

REPORT INFORMATION
  Report Type: Spontaneous
  Country: US (occurrence: US)
  Receive Date: 20170327
  Receipt Date: 20170327
  Transmission Date: 20170429
  Serious: No
  Sender: FDA-Public Use
  Company Number: None

PATIENT
  Age: 63 Year
  Sex: Female

DRUGS (8)
  1. CALCIUM [Concomitant]
     Active Substance: CALCIUM
  2. MONTELUKAST [Concomitant]
     Active Substance: MONTELUKAST SODIUM
  3. FORTEO [Suspect]
     Active Substance: TERIPARATIDE
     Indication: OSTEOPOROSIS
     Route: 058
     Dates: start: 20150716
  4. CLARINEX [Concomitant]
     Active Substance: DESLORATADINE
  5. GABAPENTIN. [Concomitant]
     Active Substance: GABAPENTIN
  6. PENTAZOLE [Concomitant]
  7. VITAMIN D [Concomitant]
     Active Substance: CHOLECALCIFEROL
  8. VITAMIN B [Concomitant]
     Active Substance: VITAMIN B

REACTIONS (2)
  - Small cell lung cancer [None]
  - White blood cell count decreased [None]

NARRATIVE: CASE EVENT DATE: 20170311
